FAERS Safety Report 21795937 (Version 2)
Quarter: 2023Q1

REPORT INFORMATION
  Report Type: Spontaneous
  Country: CN (occurrence: CN)
  Receive Date: 20221229
  Receipt Date: 20230111
  Transmission Date: 20230418
  Serious: Yes (Hospitalization)
  Sender: FDA-Public Use
  Company Number: CN-TEVA-2022-CN-2840311

PATIENT
  Age: 45 Year
  Sex: Male

DRUGS (5)
  1. CYCLOSPORINE [Suspect]
     Active Substance: CYCLOSPORINE
     Indication: Aplastic anaemia
     Route: 065
  2. CLOPIDOGREL [Suspect]
     Active Substance: CLOPIDOGREL BISULFATE
     Indication: Aplastic anaemia
     Dosage: 75 MILLIGRAM DAILY;
     Route: 065
  3. STANOZOLOL [Suspect]
     Active Substance: STANOZOLOL
     Indication: Aplastic anaemia
     Dosage: 6 MILLIGRAM DAILY; THREE TIMES A DAY.
     Route: 065
  4. NITROGLYCERIN [Suspect]
     Active Substance: NITROGLYCERIN
     Indication: Pain
     Route: 060
  5. ROSUVASTATIN [Concomitant]
     Active Substance: ROSUVASTATIN
     Indication: Dyslipidaemia
     Dosage: 10 MILLIGRAM DAILY;
     Route: 065

REACTIONS (5)
  - Dyslipidaemia [Recovering/Resolving]
  - Thrombocytosis [Recovering/Resolving]
  - Acute myocardial infarction [Recovering/Resolving]
  - Arteriosclerosis [Recovering/Resolving]
  - Drug ineffective [Unknown]
